FAERS Safety Report 9253177 (Version 2)
Quarter: 2013Q2

REPORT INFORMATION
  Report Type: Spontaneous
  Country: US (occurrence: US)
  Receive Date: 20130424
  Receipt Date: 20130529
  Transmission Date: 20140414
  Serious: No
  Sender: FDA-Public Use
  Company Number: US-009507513-1304USA009302

PATIENT
  Age: 51 Year
  Sex: Male
  Weight: 98.87 kg

DRUGS (1)
  1. JANUVIA [Suspect]
     Indication: BLOOD GLUCOSE INCREASED
     Dosage: 100 MG, UNK
     Route: 048
     Dates: start: 20130409, end: 20130416

REACTIONS (1)
  - Rash pruritic [Recovered/Resolved]
